FAERS Safety Report 22183322 (Version 1)
Quarter: 2023Q2

REPORT INFORMATION
  Report Type: Report from Study
  Country: BR (occurrence: BR)
  Receive Date: 20230406
  Receipt Date: 20230406
  Transmission Date: 20230721
  Serious: Yes (Hospitalization, Other)
  Sender: FDA-Public Use
  Company Number: BR-ABBVIE-4718123

PATIENT
  Sex: Male

DRUGS (1)
  1. HUMIRA [Suspect]
     Active Substance: ADALIMUMAB
     Indication: Rheumatoid arthritis
     Dosage: START DATE TEXT: 2014 OR 2015
     Route: 058
     Dates: end: 201505

REACTIONS (3)
  - Wheelchair user [Not Recovered/Not Resolved]
  - Device related infection [Recovered/Resolved with Sequelae]
  - Pain in extremity [Recovered/Resolved]
